FAERS Safety Report 19753231 (Version 1)
Quarter: 2021Q3

REPORT INFORMATION
  Report Type: Spontaneous
  Country: US (occurrence: US)
  Receive Date: 20210826
  Receipt Date: 20210826
  Transmission Date: 20211014
  Serious: Yes (Hospitalization)
  Sender: FDA-Public Use
  Company Number: None

PATIENT
  Age: 59 Year
  Sex: Female

DRUGS (22)
  1. PREDNISONE. [Concomitant]
     Active Substance: PREDNISONE
  2. MULTI VITAMIN [Concomitant]
     Active Substance: VITAMINS
  3. LEVETIRACETAM. [Concomitant]
     Active Substance: LEVETIRACETAM
  4. IRON [Concomitant]
     Active Substance: IRON
  5. OXYMETAZOLIN [Concomitant]
  6. LIDOCAINE. [Concomitant]
     Active Substance: LIDOCAINE
  7. FLONASE [Concomitant]
     Active Substance: FLUTICASONE PROPIONATE
  8. NORVASC [Concomitant]
     Active Substance: AMLODIPINE BESYLATE
  9. METOPROLOL. [Concomitant]
     Active Substance: METOPROLOL
  10. FOLIC ACID. [Concomitant]
     Active Substance: FOLIC ACID
  11. ENOXAPARIN [Concomitant]
     Active Substance: ENOXAPARIN
  12. VITAMIN A [Concomitant]
     Active Substance: VITAMIN A
  13. SPIRONOLACTONE. [Concomitant]
     Active Substance: SPIRONOLACTONE
  14. NYSTOP [Concomitant]
     Active Substance: NYSTATIN
  15. HYDROXYCHLOROQUINE [Concomitant]
     Active Substance: HYDROXYCHLOROQUINE
  16. GABAPENTIN. [Concomitant]
     Active Substance: GABAPENTIN
  17. VITAMIN D [Concomitant]
     Active Substance: VITAMIN D NOS
  18. PROAIR HFA [Concomitant]
     Active Substance: ALBUTEROL SULFATE
  19. PANTOPRAZOLE [Concomitant]
     Active Substance: PANTOPRAZOLE
  20. LISINOPRIL. [Concomitant]
     Active Substance: LISINOPRIL
  21. XELJANZ [Suspect]
     Active Substance: TOFACITINIB CITRATE
     Indication: RHEUMATOID ARTHRITIS
     Route: 048
     Dates: start: 20160408
  22. PRILOSEC [Concomitant]
     Active Substance: OMEPRAZOLE MAGNESIUM

REACTIONS (8)
  - Myocardial infarction [None]
  - Cerebrovascular accident [None]
  - Pneumonia [None]
  - Vomiting [None]
  - Pancreatitis [None]
  - Therapy cessation [None]
  - Product use issue [None]
  - Generalised tonic-clonic seizure [None]
